FAERS Safety Report 7239173-4 (Version None)
Quarter: 2011Q1

REPORT INFORMATION
  Report Type: 
  Country: None (occurrence: None)
  Receive Date: 20110119
  Receipt Date: 20110119
  Transmission Date: 20110831
  Serious: Yes (Other)
  Sender: FDA-Public Use
  Company Number: None

PATIENT
  Age: 61 Year
  Sex: Female
  Weight: 56.246 kg

DRUGS (1)
  1. MEAGAIN OTC DOES NOT STATE AMOUNT OF LAKE CONSUMER PRODUCTS, INC. [Suspect]
     Indication: VULVOVAGINAL DRYNESS
     Dosage: 1 APPLICATOR 2 X WEEK VAG
     Route: 067
     Dates: start: 20101001, end: 20110113

REACTIONS (1)
  - PRODUCT LABEL ISSUE [None]
